FAERS Safety Report 10643310 (Version 1)
Quarter: 2014Q4

REPORT INFORMATION
  Report Type: Spontaneous
  Country: US (occurrence: None)
  Receive Date: 20141121
  Receipt Date: 20141121
  Transmission Date: 20150529
  Serious: Yes (Other)
  Sender: FDA-Public Use
  Company Number: 163-10004-14074660

PATIENT
  Age: 49 Year
  Sex: Female

DRUGS (4)
  1. DOXEPIN (DOXEPIN) (DOXEPIN) [Concomitant]
     Active Substance: DOXEPIN
  2. METFORMIN [Concomitant]
     Active Substance: METFORMIN HYDROCHLORIDE
  3. NEXIUM [Concomitant]
     Active Substance: ESOMEPRAZOLE MAGNESIUM
  4. OTEZLA [Suspect]
     Active Substance: APREMILAST
     Indication: PSORIATIC ARTHROPATHY
     Dosage: 30 MG, 1 IN 1 D, PO
     Route: 048

REACTIONS (1)
  - Hypersensitivity [None]
